FAERS Safety Report 10218859 (Version 1)
Quarter: 2014Q1

REPORT INFORMATION
  Report Type: Spontaneous
  Country: US (occurrence: None)
  Receive Date: 20140306
  Receipt Date: 20140306
  Transmission Date: 20141002
  Serious: Yes (Hospitalization, Other)
  Sender: FDA-Public Use
  Company Number: 163-21880-12103464

PATIENT
  Age: 75 Year
  Sex: Male

DRUGS (6)
  1. REVLIMID (LENALIDOMIDE) (10 MILLIGRAM, CAPSULES) [Suspect]
     Indication: MYELODYSPLASTIC SYNDROME
     Dosage: 10 MG, 21 IN 21 D, PO
     Route: 048
     Dates: start: 20120910, end: 20130313
  2. VIDAZA (AZACITIDINE) (UNKNOWN) [Suspect]
     Indication: MYELODYSPLASTIC SYNDROME
     Dosage: 150 MG, 7 IN 28 D
     Dates: start: 20130205
  3. AMLODIPINE BESYLATE (AMLODIPINE BESILATE) [Concomitant]
  4. ASPIRIN LOW DOSE (ACETYLSALICYLIC ACID) [Concomitant]
  5. CRESTOR (ROSUVASTATIN) [Concomitant]
  6. HYDROCHLOROTHIAZIDE (HYDROCHLOROTHIAZIDE) [Concomitant]

REACTIONS (6)
  - Diarrhoea [None]
  - Pyrexia [None]
  - Haemoglobin decreased [None]
  - Platelet count decreased [None]
  - Decreased appetite [None]
  - Abdominal pain [None]
